FAERS Safety Report 5237710-2 (Version None)
Quarter: 2007Q1

REPORT INFORMATION
  Report Type: 
  Country: None (occurrence: None)
  Receive Date: 20070214
  Receipt Date: 20070209
  Transmission Date: 20070707
  Serious: Yes (Life-Threatening, Hospitalization)
  Sender: FDA-Public Use
  Company Number: 2007AP00858

PATIENT
  Age: 27032 Day
  Sex: Male

DRUGS (6)
  1. ATENOLOL [Suspect]
     Indication: ESSENTIAL HYPERTENSION
     Route: 048
     Dates: start: 20040615, end: 20060815
  2. ATACAND [Suspect]
     Indication: ESSENTIAL HYPERTENSION
     Route: 048
     Dates: start: 20050615, end: 20060815
  3. LIPITOR [Suspect]
     Indication: METABOLIC DISORDER
     Route: 048
     Dates: start: 20040615, end: 20060815
  4. MELOXICAM [Suspect]
     Indication: OSTEOARTHRITIS
     Route: 048
     Dates: start: 20000615, end: 20060815
  5. PARIET [Suspect]
     Indication: OESOPHAGEAL DISORDER
     Route: 048
     Dates: start: 20050715, end: 20060815
  6. VIAGRA [Suspect]
     Indication: SOMATOFORM DISORDER
     Route: 048
     Dates: start: 20030615, end: 20060815

REACTIONS (2)
  - HEPATITIS [None]
  - NEPHRITIS [None]
